FAERS Safety Report 4543402-5 (Version None)
Quarter: 2005Q1

REPORT INFORMATION
  Report Type: 
  Country: None (occurrence: None)
  Receive Date: 20041223
  Receipt Date: 20041111
  Transmission Date: 20050727
  Serious: No
  Sender: FDA-Public Use
  Company Number: US-JNJFOC-20041103564

PATIENT
  Age: 42 Year
  Sex: Female
  Weight: 96.1626 kg

DRUGS (2)
  1. ORTHO EVRA [Suspect]
     Indication: UTERINE LEIOMYOMA
     Dosage: 1 DOSE(S), 3 IN 4 WEEK, TRANSDERMAL
     Route: 062
     Dates: start: 20041026
  2. MULTIVITAMIN          (MULTIVITAMINS) [Concomitant]

REACTIONS (1)
  - METRORRHAGIA [None]
